FAERS Safety Report 9846944 (Version 1)
Quarter: 2014Q1

REPORT INFORMATION
  Report Type: Spontaneous
  Country: FR (occurrence: FR)
  Receive Date: 20140127
  Receipt Date: 20140127
  Transmission Date: 20141002
  Serious: Yes (Hospitalization)
  Sender: FDA-Public Use
  Company Number: FR-TEVA-456764ISR

PATIENT
  Age: 31 Year
  Sex: Female

DRUGS (1)
  1. LELLOO 0.1 MG /0.02 MG [Suspect]
     Indication: ORAL CONTRACEPTION
     Dosage: 1 TABLET DAILY;
     Route: 048
     Dates: start: 201308, end: 201312

REACTIONS (2)
  - Dizziness [Not Recovered/Not Resolved]
  - Epilepsy [Not Recovered/Not Resolved]
